FAERS Safety Report 7499536-9 (Version None)
Quarter: 2011Q2

REPORT INFORMATION
  Report Type: 
  Country: None (occurrence: None)
  Receive Date: 20110524
  Receipt Date: 20110523
  Transmission Date: 20111010
  Serious: Yes (Death, Hospitalization)
  Sender: FDA-Public Use
  Company Number: PHHO2011IT08787

PATIENT
  Sex: Male
  Weight: 81.9 kg

DRUGS (5)
  1. BLINDED NO TREATMENT RECEIVED [Suspect]
     Indication: CARDIAC FAILURE
     Dosage: CODE NOT BROKEN
     Route: 048
  2. BLINDED ALISKIREN [Suspect]
     Indication: CARDIAC FAILURE
     Dosage: CODE NOT BROKEN
     Route: 048
  3. ENALAPRIL MALEATE [Suspect]
     Indication: CARDIAC FAILURE
     Dosage: CODE NOT BROKEN
     Route: 048
  4. ENALAPRIL MALEATE [Suspect]
     Indication: CARDIAC FAILURE
  5. ALISKIREN [Suspect]
     Indication: CARDIAC FAILURE

REACTIONS (1)
  - DEATH [None]
